FAERS Safety Report 9354815 (Version 1)
Quarter: 2013Q2

REPORT INFORMATION
  Report Type: Spontaneous
  Country: US (occurrence: None)
  Receive Date: 20130618
  Receipt Date: 20130618
  Transmission Date: 20140414
  Serious: Yes (Life-Threatening)
  Sender: FDA-Public Use
  Company Number: None

PATIENT
  Age: 69 Year
  Sex: Male
  Weight: 96.62 kg

DRUGS (6)
  1. GABAPENTIN [Suspect]
     Indication: MUSCLE SPASMS
     Dosage: 1-2 CAPS AT BEDTIME BY MOUTH?STARTED TAKING: 08/16/13?STOPPED TAKING: 03/    / 13
     Route: 048
  2. LISINOPRIL [Concomitant]
  3. HYDROCHLOROTHIAZIDE [Concomitant]
  4. PRAVASTATIN [Concomitant]
  5. ASA [Concomitant]
  6. FISH OIL [Concomitant]

REACTIONS (3)
  - Amnesia [None]
  - Dysphagia [None]
  - Choking [None]
